FAERS Safety Report 11074805 (Version 1)
Quarter: 2015Q2

REPORT INFORMATION
  Report Type: Spontaneous
  Country: IN (occurrence: IN)
  Receive Date: 20150429
  Receipt Date: 20150429
  Transmission Date: 20150821
  Serious: Yes (Other)
  Sender: FDA-Public Use
  Company Number: IN-AUROBINDO-AUR-APL-2015-03720

PATIENT
  Age: 78 Year
  Sex: Female

DRUGS (2)
  1. QUETIAPINE [Concomitant]
     Active Substance: QUETIAPINE
     Indication: PRODUCT USED FOR UNKNOWN INDICATION
     Dosage: UNK
     Route: 065
  2. RISPERIDONE 1MG [Suspect]
     Active Substance: RISPERIDONE
     Indication: ANXIETY
     Dosage: 1 MG, DAILY
     Route: 065

REACTIONS (5)
  - Movement disorder [Recovered/Resolved]
  - Drug ineffective [Recovered/Resolved]
  - Akathisia [Recovered/Resolved]
  - Hyperhidrosis [Recovered/Resolved]
  - Eructation [Recovered/Resolved]
